FAERS Safety Report 16165220 (Version 2)
Quarter: 2019Q2

REPORT INFORMATION
  Report Type: Report from Study
  Country: CA (occurrence: CA)
  Receive Date: 20190405
  Receipt Date: 20190607
  Transmission Date: 20190711
  Serious: Yes (Hospitalization, Other)
  Sender: FDA-Public Use
  Company Number: PHHY2019CA077646

PATIENT
  Age: 62 Year
  Sex: Female

DRUGS (11)
  1. RABEPRAZOLE SANDOZ [Suspect]
     Active Substance: RABEPRAZOLE
     Indication: PRODUCT USED FOR UNKNOWN INDICATION
     Dosage: 1 DF, QD
     Route: 055
     Dates: start: 201807
  2. MOMETASONE SANDOZ [Concomitant]
     Active Substance: MOMETASONE
     Indication: NASAL CONGESTION
     Dosage: 1 DF, QD
     Route: 045
     Dates: start: 201802
  3. ALVESCO [Concomitant]
     Active Substance: CICLESONIDE
     Indication: PRODUCT USED FOR UNKNOWN INDICATION
     Dosage: UNK
     Route: 055
  4. REACTINE [Concomitant]
     Indication: PRODUCT USED FOR UNKNOWN INDICATION
     Dosage: 1 DF, QD
     Route: 048
  5. ATARAX [Concomitant]
     Active Substance: HYDROXYZINE HYDROCHLORIDE
     Indication: HYPERSENSITIVITY
     Dosage: UNK
     Route: 065
  6. RIVA ATORVASTATIN [Concomitant]
     Indication: BLOOD CHOLESTEROL ABNORMAL
     Dosage: 1 DF, QD
     Route: 048
  7. PRAMIPEXOLE SANDOZ [Concomitant]
     Active Substance: PRAMIPEXOLE
     Indication: INCONTINENCE
     Dosage: 3 DF, QD
     Route: 048
     Dates: start: 1998
  8. RIVA RANITIDINE [Concomitant]
     Indication: PRODUCT USED FOR UNKNOWN INDICATION
     Dosage: 1 DF, QD
     Route: 048
  9. INSPIOLTO RESPIMAT [Concomitant]
     Active Substance: OLODATEROL HYDROCHLORIDE\TIOTROPIUM BROMIDE MONOHYDRATE
     Indication: PRODUCT USED FOR UNKNOWN INDICATION
     Dosage: 2 DF, BID
     Route: 055
  10. VENTOLIN [Concomitant]
     Active Substance: ALBUTEROL SULFATE
     Indication: ASTHMA
     Dosage: 2 DF, BID
     Route: 055
     Dates: start: 2003
  11. ATROVENT [Concomitant]
     Active Substance: IPRATROPIUM BROMIDE
     Indication: PRODUCT USED FOR UNKNOWN INDICATION
     Dosage: 1 DF, TID
     Route: 055

REACTIONS (6)
  - Bacterial test positive [Unknown]
  - Neoplasm malignant [Unknown]
  - Pulmonary embolism [Unknown]
  - Blood pressure abnormal [Unknown]
  - Heart rate irregular [Unknown]
  - Pyrexia [Unknown]

NARRATIVE: CASE EVENT DATE: 20190329
